FAERS Safety Report 9851157 (Version 1)
Quarter: 2014Q1

REPORT INFORMATION
  Report Type: Spontaneous
  Country: CA (occurrence: CA)
  Receive Date: 20140128
  Receipt Date: 20140128
  Transmission Date: 20141002
  Serious: Yes (Other)
  Sender: FDA-Public Use
  Company Number: CA-B.I. PHARMACEUTICALS,INC./RIDGEFIELD-2014-BI-03623CN

PATIENT
  Age: 75 Year
  Sex: Male

DRUGS (5)
  1. SPIRIVA [Suspect]
     Dosage: DOSE PER APPLICATION: 1.0 DOSAGE FORMS
     Route: 065
  2. ADVAIR DISKUS [Suspect]
     Dosage: DOSE PER APPLICATION: 1.0 DOSAGE FORMS.
     Route: 055
  3. NASAL SPRAY [Concomitant]
     Dosage: INTRA-NASAL
     Route: 045
  4. VICKS VAPORUB [Concomitant]
     Route: 045
  5. VICKS VAPOUR INHALER [Concomitant]
     Route: 065

REACTIONS (3)
  - Dyspnoea [Unknown]
  - Insomnia [Unknown]
  - Nasal congestion [Unknown]
